FAERS Safety Report 14576423 (Version 1)
Quarter: 2018Q1

REPORT INFORMATION
  Report Type: Spontaneous
  Country: US (occurrence: US)
  Receive Date: 20180227
  Receipt Date: 20180227
  Transmission Date: 20180509
  Serious: No
  Sender: FDA-Public Use
  Company Number: US-PFIZER INC-2018080285

PATIENT
  Age: 82 Year
  Sex: Female
  Weight: 43 kg

DRUGS (1)
  1. LYRICA [Suspect]
     Active Substance: PREGABALIN
     Indication: NEUROPATHY PERIPHERAL
     Dosage: 75 MG, 3X/DAY
     Route: 048
     Dates: start: 201712

REACTIONS (2)
  - Product use in unapproved indication [Unknown]
  - Visual impairment [Unknown]

NARRATIVE: CASE EVENT DATE: 201712
